FAERS Safety Report 13424182 (Version 1)
Quarter: 2017Q2

REPORT INFORMATION
  Report Type: Spontaneous
  Country: FR (occurrence: FR)
  Receive Date: 20170410
  Receipt Date: 20170410
  Transmission Date: 20170830
  Serious: Yes (Hospitalization, Other)
  Sender: FDA-Public Use
  Company Number: FR-ELI_LILLY_AND_COMPANY-FR201704000147

PATIENT
  Age: 39 Year
  Sex: Male

DRUGS (14)
  1. DEPAKINE CHRONO [Concomitant]
     Active Substance: VALPROATE SODIUM
     Dosage: 1500 MG, QD
     Route: 048
  2. ANDROCUR [Concomitant]
     Active Substance: CYPROTERONE ACETATE
     Dosage: 150 MG, QD
     Route: 048
  3. VALIUM [Concomitant]
     Active Substance: DIAZEPAM
     Dosage: 5 MG, TID
     Route: 048
  4. ZYPREXA [Suspect]
     Active Substance: OLANZAPINE
     Dosage: 10 MG, QD
     Route: 048
     Dates: start: 20170213
  5. SAPODERM                           /00107601/ [Concomitant]
     Dosage: 1 MG, 72 HOURS
     Route: 062
  6. DUPHALAC [Concomitant]
     Active Substance: LACTULOSE
     Dosage: UNK, UNKNOWN
     Route: 065
  7. ZYPREXA [Suspect]
     Active Substance: OLANZAPINE
     Dosage: 30 MG, QD
     Route: 048
     Dates: start: 20150326
  8. UVEDOSE [Concomitant]
     Active Substance: CHOLECALCIFEROL
     Dosage: UNK, UNKNOWN
     Route: 065
  9. ANDROCUR [Concomitant]
     Active Substance: CYPROTERONE ACETATE
     Dosage: 50 MG, QD
     Route: 048
     Dates: start: 20170213
  10. ZYPREXA [Suspect]
     Active Substance: OLANZAPINE
     Indication: ABNORMAL BEHAVIOUR
     Dosage: 10 MG, QD
     Route: 048
     Dates: start: 201411
  11. XATRAL [Concomitant]
     Active Substance: ALFUZOSIN
     Dosage: 10 MG, QD
     Route: 048
  12. ZYPREXA [Suspect]
     Active Substance: OLANZAPINE
     Dosage: 20 MG, QD
     Route: 048
     Dates: start: 20141122
  13. ZYPREXA [Suspect]
     Active Substance: OLANZAPINE
     Dosage: 30 MG, QD
     Route: 048
     Dates: start: 20170217, end: 20170301
  14. NEURONTIN [Concomitant]
     Active Substance: GABAPENTIN
     Dosage: 1600 MG, BID
     Route: 048

REACTIONS (5)
  - Mydriasis [Unknown]
  - Overdose [Unknown]
  - Hypothermia [Recovered/Resolved]
  - Somnolence [Unknown]
  - Pneumonia aspiration [Unknown]

NARRATIVE: CASE EVENT DATE: 20170301
